FAERS Safety Report 13346867 (Version 2)
Quarter: 2017Q2

REPORT INFORMATION
  Report Type: Spontaneous
  Country: BR (occurrence: BR)
  Receive Date: 20170317
  Receipt Date: 20170418
  Transmission Date: 20170830
  Serious: Yes (Death, Hospitalization, Other)
  Sender: FDA-Public Use
  Company Number: BR-PFIZER INC-2017113368

PATIENT
  Sex: Female

DRUGS (5)
  1. MAREVAN [Suspect]
     Active Substance: WARFARIN SODIUM
     Indication: POOR PERIPHERAL CIRCULATION
  2. XARELTO [Suspect]
     Active Substance: RIVAROXABAN
     Indication: THROMBOSIS
  3. BRIMONIDINE [Concomitant]
     Active Substance: BRIMONIDINE TARTRATE
     Indication: GLAUCOMA
     Dosage: UNK
  4. XALATAN [Suspect]
     Active Substance: LATANOPROST
     Indication: GLAUCOMA
     Dosage: 1 DROP IN EACH EYE (3UG), 1X/DAY
     Route: 047
  5. AZOPT [Suspect]
     Active Substance: BRINZOLAMIDE
     Indication: GLAUCOMA
     Dosage: UNK

REACTIONS (18)
  - Anaemia [Fatal]
  - Erysipelas [Not Recovered/Not Resolved]
  - Thrombosis [Recovered/Resolved]
  - Pneumonia [Not Recovered/Not Resolved]
  - Diarrhoea haemorrhagic [Recovered/Resolved]
  - Neoplasm malignant [Not Recovered/Not Resolved]
  - Asthenia [Not Recovered/Not Resolved]
  - Poor peripheral circulation [Recovered/Resolved]
  - Sepsis [Fatal]
  - Cardiac disorder [Fatal]
  - Haematemesis [Not Recovered/Not Resolved]
  - Haemorrhage [Recovered/Resolved]
  - Eschar [Not Recovered/Not Resolved]
  - Urinary tract infection [Not Recovered/Not Resolved]
  - Hypertension [Not Recovered/Not Resolved]
  - Thyroid disorder [Recovered/Resolved]
  - Drug ineffective [Unknown]
  - Abasia [Not Recovered/Not Resolved]

NARRATIVE: CASE EVENT DATE: 201612
